FAERS Safety Report 8988458 (Version 1)
Quarter: 2012Q4

REPORT INFORMATION
  Report Type: Spontaneous
  Country: US (occurrence: None)
  Receive Date: 20121218
  Receipt Date: 20121218
  Transmission Date: 20130627
  Serious: Yes (Other)
  Sender: FDA-Public Use
  Company Number: DSA_61425_2012

PATIENT
  Age: 47 Year
  Sex: Male

DRUGS (4)
  1. FLUOROURACIL (FLUOROURACIL) [Suspect]
     Dosage: (10 min bolus at 400 mg/m2 Intravenous bolus) , (44 h infusion at 1200 mg/m2 Intravenous (nor otherwise specified)
     Route: 040
  2. FLUOROURACIL (FLUOROURACIL) [Suspect]
     Route: 042
  3. FOLINIC ACID [Suspect]
     Indication: NEUROENDOCRINE CARCINOMA
  4. IRINOTECAN (IRINOTECAN) [Suspect]
     Indication: NEUROENDOCRINE CARCINOMA

REACTIONS (3)
  - Cholestasis [None]
  - Diarrhoea [None]
  - Toxicity to various agents [None]
